FAERS Safety Report 15486002 (Version 1)
Quarter: 2018Q4

REPORT INFORMATION
  Report Type: Spontaneous
  Country: DK (occurrence: DK)
  Receive Date: 20181011
  Receipt Date: 20181011
  Transmission Date: 20190205
  Serious: Yes (Life-Threatening, Hospitalization)
  Sender: FDA-Public Use
  Company Number: DK-TEVA-2018-DK-963253

PATIENT
  Age: 83 Year
  Sex: Female

DRUGS (17)
  1. PANODIL [Concomitant]
     Active Substance: ACETAMINOPHEN
     Indication: PAIN
     Dosage: DOSIS: 2 TABLETTER VED BEHOV H?JST 4 GANGE DAGLIG. STYRKE: 500 MG.
     Route: 048
     Dates: start: 20141120
  2. MAGNESIUM HYDROXIDE. [Concomitant]
     Active Substance: MAGNESIUM HYDROXIDE
     Indication: CONSTIPATION
     Dosage: 1000 MILLIGRAM DAILY; STYRKE: 500 MG.
     Route: 048
     Dates: start: 20170619
  3. CLOPIDOGREL [Concomitant]
     Active Substance: CLOPIDOGREL BISULFATE
     Indication: THROMBOSIS PROPHYLAXIS
     Dosage: 75 MILLIGRAM DAILY; STYRKE: 75 MG.
     Route: 048
     Dates: start: 20150511
  4. SPIRIVA [Concomitant]
     Active Substance: TIOTROPIUM BROMIDE MONOHYDRATE
     Indication: CHRONIC OBSTRUCTIVE PULMONARY DISEASE
     Dosage: 18 MICROGRAM DAILY; STYRKE: 18 ?G.
     Route: 055
     Dates: start: 20150519
  5. METOPROLOL. [Concomitant]
     Active Substance: METOPROLOL
     Indication: HYPERTENSION
     Dosage: 200 MILLIGRAM DAILY; STYRKE: 200 MG.
     Route: 048
     Dates: start: 20070523
  6. UNIKALK MED D-VITAMIN [Concomitant]
     Indication: MINERAL SUPPLEMENTATION
     Dosage: STYRKE: 400 MG + 19 ?G.
     Route: 048
     Dates: start: 20140708
  7. PANTOPRAZOLE ^TEVA^ [Concomitant]
     Indication: GASTRIC PH DECREASED
     Dosage: 40 MILLIGRAM DAILY; STYRKE: 40 MG.
     Route: 048
  8. GEMADOL RETARD [Concomitant]
     Active Substance: TRAMADOL HYDROCHLORIDE
     Indication: PAIN
     Dosage: 150 MILLIGRAM DAILY; STYRKE: 50 MG.
     Route: 048
     Dates: start: 20180717
  9. GLUCOSAMINE [Concomitant]
     Active Substance: GLUCOSAMINE
     Indication: RHEUMATOID ARTHRITIS
     Dosage: 800 MILLIGRAM DAILY; STYRKE: 400 MG.
     Route: 048
     Dates: start: 20170619
  10. EMTHEXATE [Suspect]
     Active Substance: METHOTREXATE
     Indication: RHEUMATOID ARTHRITIS
     Dosage: 10 MILLIGRAM DAILY; STYRKE: 2,5 MG.
     Route: 048
     Dates: start: 20180911, end: 20180918
  11. POTASSIUM CHLORIDE. [Concomitant]
     Active Substance: POTASSIUM CHLORIDE
     Indication: MINERAL SUPPLEMENTATION
     Dosage: 750 MILLIGRAM DAILY; STYRKE: 750 MG.
     Route: 048
     Dates: start: 20170619
  12. MACROGOL [Concomitant]
     Active Substance: POLYETHYLENE GLYCOLS
     Indication: CONSTIPATION
     Dosage: DOSIS: 1 BREV VED BEHOV. STYRKE: UKENDT.
     Route: 048
     Dates: start: 20180629
  13. OMEPRAZOLE. [Concomitant]
     Active Substance: OMEPRAZOLE
     Indication: PROPHYLAXIS AGAINST GASTROINTESTINAL ULCER
     Dosage: 20 MILLIGRAM DAILY; STYRKE: 20 MG.
     Route: 048
     Dates: start: 20150122
  14. SIMVASTATIN. [Concomitant]
     Active Substance: SIMVASTATIN
     Indication: HYPERCHOLESTEROLAEMIA
     Dosage: 20 MILLIGRAM DAILY; STYRKE: 20 MG.
     Route: 048
     Dates: start: 20140711
  15. SYMBICORT [Concomitant]
     Active Substance: BUDESONIDE\FORMOTEROL FUMARATE DIHYDRATE
     Indication: LUNG DISORDER
     Dosage: 4 DOSAGE FORMS DAILY; STYRKE: 4,5 + 160 ?G/DOSIS.
     Route: 055
     Dates: start: 20130917
  16. ZOPICLONE [Concomitant]
     Active Substance: ZOPICLONE
     Indication: INSOMNIA
     Dosage: DOSIS: 1 TABLET VED BEHOV H?JST 1 GANG DAGLIGT. STYRKE: 3,75 MG.
     Route: 048
     Dates: start: 20170619
  17. FOLSYRE [Concomitant]
     Indication: VITAMIN SUPPLEMENTATION
     Dosage: STYRKE: 5 MG.
     Route: 048
     Dates: start: 20180629

REACTIONS (13)
  - Dehydration [Unknown]
  - Abdominal pain upper [Unknown]
  - Inappropriate schedule of product administration [Unknown]
  - Toxicity to various agents [Unknown]
  - Medication error [Recovered/Resolved]
  - C-reactive protein increased [Unknown]
  - Vomiting [Unknown]
  - Infection [Unknown]
  - Renal impairment [Not Recovered/Not Resolved]
  - Leukopenia [Not Recovered/Not Resolved]
  - Diarrhoea [Not Recovered/Not Resolved]
  - Pyrexia [Unknown]
  - Nausea [Unknown]

NARRATIVE: CASE EVENT DATE: 20180911
